FAERS Safety Report 5056818-8 (Version None)
Quarter: 2006Q2

REPORT INFORMATION
  Report Type: 
  Country: None (occurrence: None)
  Receive Date: 20060619
  Receipt Date: 20050601
  Transmission Date: 20061013
  Serious: Yes (Hospitalization)
  Sender: FDA-Public Use
  Company Number: WAES 0506USA00701

PATIENT
  Sex: Male
  Weight: 72.5755 kg

DRUGS (5)
  1. COZAAR [Suspect]
     Dosage: 50 MG/PO
     Route: 048
     Dates: start: 20050301, end: 20050501
  2. LASIX [Concomitant]
  3. LIPITOR [Concomitant]
  4. LOPRESSOR [Concomitant]
  5. NORVASC [Concomitant]

REACTIONS (1)
  - BLOOD CREATININE INCREASED [None]
